FAERS Safety Report 9542266 (Version 1)
Quarter: 2013Q3

REPORT INFORMATION
  Report Type: Spontaneous
  Country: US (occurrence: None)
  Receive Date: 20130918
  Receipt Date: 20130918
  Transmission Date: 20140515
  Serious: No
  Sender: FDA-Public Use
  Company Number: 2013CT000065

PATIENT
  Age: 81 Year
  Sex: Female

DRUGS (2)
  1. KORLYM [Suspect]
     Indication: PITUITARY-DEPENDENT CUSHING^S SYNDROME
     Route: 048
     Dates: start: 201307
  2. WARFARIN [Concomitant]

REACTIONS (5)
  - International normalised ratio increased [None]
  - Laceration [None]
  - Swelling [None]
  - Haemorrhage [None]
  - Abdominal discomfort [None]
